FAERS Safety Report 16208775 (Version 1)
Quarter: 2019Q2

REPORT INFORMATION
  Report Type: Spontaneous
  Country: PL (occurrence: PL)
  Receive Date: 20190417
  Receipt Date: 20190417
  Transmission Date: 20190711
  Serious: Yes (Life-Threatening, Hospitalization, Disabling)
  Sender: FDA-Public Use
  Company Number: PL-PFIZER INC-2019163195

PATIENT
  Age: 67 Year
  Sex: Male
  Weight: 83 kg

DRUGS (1)
  1. CELEBREX [Suspect]
     Active Substance: CELECOXIB
     Indication: ARTHRALGIA
     Dosage: (DRUG UNUSED EARLIER)
     Route: 048
     Dates: start: 20140925, end: 20140926

REACTIONS (6)
  - Chest pain [Recovering/Resolving]
  - Extensor plantar response [Recovering/Resolving]
  - Hypertension [Recovering/Resolving]
  - Aphasia [Recovering/Resolving]
  - Ischaemic stroke [Recovering/Resolving]
  - Speech disorder [Recovering/Resolving]

NARRATIVE: CASE EVENT DATE: 20140926
